FAERS Safety Report 11785192 (Version 1)
Quarter: 2015Q4

REPORT INFORMATION
  Report Type: Spontaneous
  Country: US (occurrence: US)
  Receive Date: 20151130
  Receipt Date: 20151130
  Transmission Date: 20160305
  Serious: No
  Sender: FDA-Public Use
  Company Number: US-PFIZER INC-2015175916

PATIENT
  Age: 69 Year
  Sex: Female
  Weight: 55 kg

DRUGS (11)
  1. LYRICA [Suspect]
     Active Substance: PREGABALIN
     Indication: SYSTEMIC LUPUS ERYTHEMATOSUS
     Dosage: UNK
     Dates: start: 20150520
  2. SUCRALFATE. [Concomitant]
     Active Substance: SUCRALFATE
     Dosage: UNK
  3. LYRICA [Suspect]
     Active Substance: PREGABALIN
     Indication: FIBROMYALGIA
     Dosage: 100 MG, 2X/DAY
     Route: 048
  4. TRAMADOL. [Concomitant]
     Active Substance: TRAMADOL
     Dosage: UNK
  5. WARFARIN [Concomitant]
     Active Substance: WARFARIN
     Dosage: 7.5 MG, UNK
  6. BACLOFEN. [Concomitant]
     Active Substance: BACLOFEN
     Dosage: UNK
  7. OXYCODONE [Concomitant]
     Active Substance: OXYCODONE
     Dosage: UNK
  8. PREDNISONE. [Concomitant]
     Active Substance: PREDNISONE
     Dosage: UNK
  9. LYRICA [Suspect]
     Active Substance: PREGABALIN
     Indication: NEUROPATHY PERIPHERAL
     Dosage: 100 MG, 2X/DAY
     Route: 048
     Dates: start: 20150706
  10. OMEPRAZOLE. [Concomitant]
     Active Substance: OMEPRAZOLE
     Dosage: UNK
  11. OXYBUTYNIN [Concomitant]
     Active Substance: OXYBUTYNIN
     Dosage: UNK

REACTIONS (2)
  - Malaise [Unknown]
  - Product use issue [Unknown]
